FAERS Safety Report 13310204 (Version 1)
Quarter: 2017Q1

REPORT INFORMATION
  Report Type: Spontaneous
  Country: US (occurrence: US)
  Receive Date: 20170309
  Receipt Date: 20170309
  Transmission Date: 20170428
  Serious: Yes (Hospitalization)
  Sender: FDA-Public Use
  Company Number: None

PATIENT
  Age: 85 Year
  Sex: Female
  Weight: 61.29 kg

DRUGS (12)
  1. PROLIA [Suspect]
     Active Substance: DENOSUMAB
     Indication: OSTEOPOROSIS
     Dosage: 60MG Q 6 MO INJECTION Q6 MO INJECTION
     Dates: start: 20150415, end: 20160415
  2. TRAZODONE [Concomitant]
     Active Substance: TRAZODONE HYDROCHLORIDE
  3. OXYCODONE [Concomitant]
     Active Substance: OXYCODONE
  4. SIMVASTIN [Concomitant]
     Active Substance: SIMVASTATIN
  5. PANTOPRAZOLE [Concomitant]
     Active Substance: PANTOPRAZOLE SODIUM
  6. ANORO ELIPTA INHALER [Concomitant]
  7. STOOL SOFTENER (DOCUSATE SODIUM) [Concomitant]
     Active Substance: DOCUSATE SODIUM
  8. LOSARTAN. [Concomitant]
     Active Substance: LOSARTAN
  9. CALCIUM [Concomitant]
     Active Substance: CALCIUM
  10. VENTOLIN [Concomitant]
     Active Substance: ALBUTEROL SULFATE
  11. TYLENOL [Concomitant]
     Active Substance: ACETAMINOPHEN
  12. CLARITIN (NON DROWSY) [Concomitant]

REACTIONS (5)
  - Discomfort [None]
  - Pyrexia [None]
  - Chills [None]
  - Dyspnoea [None]
  - Asthenia [None]

NARRATIVE: CASE EVENT DATE: 20160415
